FAERS Safety Report 16424417 (Version 2)
Quarter: 2019Q3

REPORT INFORMATION
  Report Type: Report from Study
  Country: US (occurrence: US)
  Receive Date: 20190613
  Receipt Date: 20190715
  Transmission Date: 20191004
  Serious: Yes (Death, Hospitalization, Other)
  Sender: FDA-Public Use
  Company Number: US-BAYER-2019-108298

PATIENT
  Sex: Male
  Weight: 107.94 kg

DRUGS (4)
  1. ACETAMINOPHEN;OXYCODONE HYDROCHLORIDE [Concomitant]
     Active Substance: ACETAMINOPHEN\OXYCODONE HYDROCHLORIDE
     Dosage: UNK
  2. STIVARGA [Suspect]
     Active Substance: REGORAFENIB
     Indication: RECTAL CANCER
     Dosage: 160 MG, QD DAILY FOR 21 OF 28 DAYS
     Route: 048
     Dates: start: 20190405
  3. STIVARGA [Suspect]
     Active Substance: REGORAFENIB
     Indication: COLON CANCER
  4. LOVENOX [LEVOFLOXACIN] [Concomitant]
     Dosage: UNK

REACTIONS (4)
  - Irritability [None]
  - Chest pain [None]
  - Death [Fatal]
  - Neuropathy peripheral [None]
